FAERS Safety Report 20311510 (Version 1)
Quarter: 2022Q1

REPORT INFORMATION
  Report Type: Spontaneous
  Country: CA (occurrence: CA)
  Receive Date: 20220108
  Receipt Date: 20220108
  Transmission Date: 20220424
  Serious: Yes (Death)
  Sender: FDA-Public Use
  Company Number: CA-002147023-NVSC2022CA001663

PATIENT
  Sex: Male

DRUGS (1)
  1. LUCENTIS [Suspect]
     Active Substance: RANIBIZUMAB
     Indication: Product used for unknown indication
     Dosage: UNK (LEFT EYE)
     Route: 065
     Dates: start: 20211210

REACTIONS (1)
  - Death [Fatal]
